FAERS Safety Report 4316640-4 (Version None)
Quarter: 2004Q1

REPORT INFORMATION
  Report Type: 
  Country: None (occurrence: None)
  Receive Date: 20040311
  Receipt Date: 20040301
  Transmission Date: 20041129
  Serious: Yes (Hospitalization)
  Sender: FDA-Public Use
  Company Number: 2004013680

PATIENT
  Age: 69 Year
  Sex: Female

DRUGS (4)
  1. LIPITOR [Suspect]
     Indication: HYPERLIPIDAEMIA
     Dosage: ORAL
     Route: 048
     Dates: end: 20031101
  2. FENTANYL [Suspect]
     Indication: PAIN
     Dosage: (EVERY 3 DAYS), TRANSDERMAL
     Route: 062
     Dates: start: 20031001
  3. PIOGLITAZONE HCL [Suspect]
     Indication: DIABETES MELLITUS
     Dosage: ORAL
     Route: 048
     Dates: end: 20031101
  4. UNSPECIFIED MEDICATIONS [Concomitant]

REACTIONS (4)
  - BLOOD GLUCOSE DECREASED [None]
  - CEREBROVASCULAR ACCIDENT [None]
  - DRUG INTERACTION [None]
  - HEPATITIS [None]
